FAERS Safety Report 20113983 (Version 2)
Quarter: 2021Q4

REPORT INFORMATION
  Report Type: Report from Study
  Country: KR (occurrence: KR)
  Receive Date: 20211125
  Receipt Date: 20211210
  Transmission Date: 20220303
  Serious: Yes (Hospitalization)
  Sender: FDA-Public Use
  Company Number: KR-ViiV Healthcare Limited-KR2021GSK243081

PATIENT
  Age: 27 Year
  Sex: Female
  Weight: 70 kg

DRUGS (1)
  1. DOLUTEGRAVIR SODIUM\LAMIVUDINE [Suspect]
     Active Substance: DOLUTEGRAVIR SODIUM\LAMIVUDINE
     Indication: HIV infection
     Dosage: 1 DF (TABLET), QD
     Route: 048
     Dates: start: 20210505

REACTIONS (1)
  - Endometriosis [Recovered/Resolved]

NARRATIVE: CASE EVENT DATE: 20210609
